FAERS Safety Report 20943250 (Version 1)
Quarter: 2022Q2

REPORT INFORMATION
  Report Type: Spontaneous
  Country: US (occurrence: None)
  Receive Date: 20220609
  Receipt Date: 20220609
  Transmission Date: 20220721
  Serious: Yes (Death)
  Sender: FDA-Public Use
  Company Number: None

PATIENT
  Age: 26 Year
  Sex: Male

DRUGS (2)
  1. TOBRAMYCIN [Suspect]
     Active Substance: TOBRAMYCIN
     Dosage: OTHER QUANTITY : 300MG/4ML;?OTHER FREQUENCY : BID EVERY OTH MONT;?
     Route: 055
  2. TOBRAMYCIN [Suspect]
     Active Substance: TOBRAMYCIN
     Dosage: OTHER QUANTITY : 1 VIA NEB;?OTHER FREQUENCY : BID EVERY OTH MONT;?
     Route: 055

REACTIONS (1)
  - Death [None]

NARRATIVE: CASE EVENT DATE: 20220501
